FAERS Safety Report 8484590-8 (Version None)
Quarter: 2012Q3

REPORT INFORMATION
  Report Type: 
  Country: None (occurrence: None)
  Receive Date: 20120703
  Receipt Date: 20120627
  Transmission Date: 20120928
  Serious: Yes (Life-Threatening, Other)
  Sender: FDA-Public Use
  Company Number: SE-ROXANE LABORATORIES, INC.-2012-RO-01489RO

PATIENT
  Age: 40 Year
  Sex: Female

DRUGS (2)
  1. QUETIAPINE FUMARATE [Suspect]
     Route: 048
  2. QUETIAPINE FUMARATE [Suspect]
     Indication: SCHIZOPHRENIA
     Dosage: 900 MG

REACTIONS (7)
  - CIRCULATORY COLLAPSE [None]
  - METABOLIC ACIDOSIS [None]
  - VENTRICULAR FIBRILLATION [None]
  - ELECTROCARDIOGRAM QRS COMPLEX PROLONGED [None]
  - CARDIAC ARREST [None]
  - INTENTIONAL OVERDOSE [None]
  - VENTRICULAR TACHYCARDIA [None]
